FAERS Safety Report 9758416 (Version 1)
Quarter: 2013Q4

REPORT INFORMATION
  Report Type: Spontaneous
  Country: US (occurrence: US)
  Receive Date: 20131216
  Receipt Date: 20131216
  Transmission Date: 20140711
  Serious: Yes (Other)
  Sender: FDA-Public Use
  Company Number: CHPA2013US018168

PATIENT
  Age: 67 Year
  Sex: Male

DRUGS (4)
  1. 4 WAY FAST ACTING NASAL SPRAY [Suspect]
     Indication: SINUS DISORDER
     Dosage: 1 DF, UNK
     Route: 045
  2. 4 WAY FAST ACTING NASAL SPRAY [Suspect]
     Indication: OFF LABEL USE
  3. AFRIN                              /00360001/ [Concomitant]
  4. DRISTAN [Concomitant]
     Dosage: UNK

REACTIONS (2)
  - Drug dependence [Not Recovered/Not Resolved]
  - Therapeutic response unexpected [Unknown]
